FAERS Safety Report 17770343 (Version 1)
Quarter: 2020Q2

REPORT INFORMATION
  Report Type: Spontaneous
  Country: US (occurrence: US)
  Receive Date: 20200512
  Receipt Date: 20200512
  Transmission Date: 20200714
  Serious: No
  Sender: FDA-Public Use
  Company Number: US-ELI_LILLY_AND_COMPANY-US202005002536

PATIENT
  Sex: Female

DRUGS (2)
  1. GLIPIZIDE. [Concomitant]
     Active Substance: GLIPIZIDE
     Indication: DIABETES MELLITUS
     Dosage: 10 MG, DAILY
  2. HUMALOG MIX75/25 [Suspect]
     Active Substance: INSULIN LISPRO
     Indication: DIABETES MELLITUS
     Dosage: 100 U, BID
     Route: 058

REACTIONS (7)
  - Speech disorder [Unknown]
  - Thirst [Unknown]
  - Mental impairment [Unknown]
  - Blood glucose increased [Unknown]
  - Balance disorder [Unknown]
  - Bowel movement irregularity [Unknown]
  - Tremor [Unknown]
